FAERS Safety Report 8155748-2 (Version None)
Quarter: 2012Q1

REPORT INFORMATION
  Report Type: 
  Country: None (occurrence: None)
  Receive Date: 20120222
  Receipt Date: 20120213
  Transmission Date: 20120608
  Serious: Yes (Hospitalization, Other)
  Sender: FDA-Public Use
  Company Number: US-ABBOTT-12P-163-0904823-00

PATIENT
  Sex: Female
  Weight: 54.48 kg

DRUGS (4)
  1. SYNTHROID [Suspect]
     Indication: HYPOTHYROIDISM
     Dates: start: 20090101
  2. VITAMIN D [Concomitant]
     Indication: PRODUCT USED FOR UNKNOWN INDICATION
  3. DASPAN [Concomitant]
     Indication: DERMATITIS HERPETIFORMIS
  4. IRON [Suspect]
     Indication: PRODUCT USED FOR UNKNOWN INDICATION

REACTIONS (8)
  - VITAMIN D DECREASED [None]
  - ERYTHEMA INFECTIOSUM [None]
  - ANAEMIA [None]
  - MUSCULOSKELETAL STIFFNESS [None]
  - FATIGUE [None]
  - ANAPHYLACTIC SHOCK [None]
  - ARTHRALGIA [None]
  - DERMATITIS HERPETIFORMIS [None]
